FAERS Safety Report 7677331-5 (Version None)
Quarter: 2011Q3

REPORT INFORMATION
  Report Type: 
  Country: None (occurrence: None)
  Receive Date: 20110808
  Receipt Date: 20110725
  Transmission Date: 20111222
  Serious: Yes (Other)
  Sender: FDA-Public Use
  Company Number: AUR-APL-2011-04475

PATIENT
  Age: 17 Year
  Sex: Male

DRUGS (8)
  1. SERTRALINE HYDROCHLORIDE [Suspect]
     Indication: ANXIETY
     Dosage: 150 MG, 1 D
  2. LORAZEPAM [Concomitant]
  3. QUETIAPINE FUMARATE [Suspect]
     Indication: ANXIETY
     Dosage: 400 MG, 1 D, 200 MG, 1 D
  4. BIPERIDEN HYDROCHLORIDE TAB [Concomitant]
  5. CLONAZEPAM [Concomitant]
  6. METHOTRIMEPRAZINE (LEVOMEPROMAZINE) [Concomitant]
  7. DIAZEPAM [Concomitant]
  8. TETRAZEPAM (TETRAZEPAM) [Concomitant]

REACTIONS (13)
  - INSOMNIA [None]
  - LACERATION [None]
  - INTENTIONAL SELF-INJURY [None]
  - PANIC ATTACK [None]
  - NIGHTMARE [None]
  - ACTIVITIES OF DAILY LIVING IMPAIRED [None]
  - THINKING ABNORMAL [None]
  - INTERMITTENT EXPLOSIVE DISORDER [None]
  - DEPRESSED MOOD [None]
  - AGGRESSION [None]
  - MOOD ALTERED [None]
  - DECREASED INTEREST [None]
  - DYSKINESIA [None]
